FAERS Safety Report 25986728 (Version 2)
Quarter: 2025Q4

REPORT INFORMATION
  Report Type: Spontaneous
  Country: US (occurrence: US)
  Receive Date: 20251102
  Receipt Date: 20251119
  Transmission Date: 20260118
  Serious: Yes (Life-Threatening, Hospitalization, Other)
  Sender: SANOFI AVENTIS
  Company Number: US-MLMSERVICE-20250710-PI575301-00097-1

PATIENT
  Age: 56 Year
  Sex: Female

DRUGS (2)
  1. ANTI-THYMOCYTE GLOBULIN (RABBIT) NOS [Suspect]
     Active Substance: LAPINE T-LYMPHOCYTE IMMUNE GLOBULIN
     Indication: Aplastic anaemia
     Dosage: UNK
  2. CYCLOSPORINE [Suspect]
     Active Substance: CYCLOSPORINE
     Indication: Aplastic anaemia
     Dosage: UNK

REACTIONS (7)
  - Pulmonary alveolar haemorrhage [Unknown]
  - Bronchopulmonary aspergillosis [Unknown]
  - Sepsis [Unknown]
  - Febrile neutropenia [Unknown]
  - Lung infiltration [Unknown]
  - Sinusitis fungal [Unknown]
  - Liver abscess [Unknown]
